FAERS Safety Report 10149582 (Version 1)
Quarter: 2014Q2

REPORT INFORMATION
  Report Type: Spontaneous
  Country: US (occurrence: US)
  Receive Date: 20140502
  Receipt Date: 20140502
  Transmission Date: 20141212
  Serious: Yes (Other)
  Sender: FDA-Public Use
  Company Number: US-PFIZER INC-2014117542

PATIENT
  Age: 67 Year
  Sex: Female

DRUGS (2)
  1. DILANTIN-125 [Suspect]
     Dosage: UNK
  2. COPAXONE [Suspect]
     Indication: MULTIPLE SCLEROSIS
     Dosage: UNK
     Dates: start: 20000607

REACTIONS (5)
  - Overdose [Unknown]
  - Lower limb fracture [Unknown]
  - Wrist fracture [Unknown]
  - Pneumonia [Unknown]
  - Diverticulitis [Unknown]
